FAERS Safety Report 5215501-6 (Version None)
Quarter: 2007Q1

REPORT INFORMATION
  Report Type: 
  Country: None (occurrence: None)
  Receive Date: 20070123
  Receipt Date: 20070111
  Transmission Date: 20070707
  Serious: Yes (Hospitalization)
  Sender: FDA-Public Use
  Company Number: 2007SE00194

PATIENT
  Age: 23571 Day
  Sex: Female

DRUGS (2)
  1. MERREM [Suspect]
     Indication: PNEUMONIA BACTERIAL
     Route: 042
     Dates: start: 20061119
  2. DEPAKOTE [Concomitant]
     Route: 048

REACTIONS (1)
  - EPILEPSY [None]
